FAERS Safety Report 7458441-4 (Version None)
Quarter: 2011Q2

REPORT INFORMATION
  Report Type: 
  Country: None (occurrence: None)
  Receive Date: 20110504
  Receipt Date: 20110427
  Transmission Date: 20111010
  Serious: Yes (Hospitalization)
  Sender: FDA-Public Use
  Company Number: B0712352A

PATIENT
  Sex: Female

DRUGS (1)
  1. AVANDIA [Suspect]
     Indication: DIABETES MELLITUS
     Dosage: 8MG PER DAY
     Route: 048
     Dates: start: 20030101

REACTIONS (5)
  - ARTERIOSCLEROSIS [None]
  - CARDIAC FAILURE [None]
  - ATRIOVENTRICULAR BLOCK [None]
  - STENT PLACEMENT [None]
  - MYOCARDIAL INFARCTION [None]
